FAERS Safety Report 22387314 (Version 4)
Quarter: 2023Q4

REPORT INFORMATION
  Report Type: Report from Study
  Country: US (occurrence: US)
  Receive Date: 20230531
  Receipt Date: 20231211
  Transmission Date: 20240109
  Serious: No
  Sender: FDA-Public Use
  Company Number: US-002147023-NVSC2023US119995

PATIENT
  Sex: Female

DRUGS (1)
  1. KESIMPTA [Suspect]
     Active Substance: OFATUMUMAB
     Indication: Product used for unknown indication
     Dosage: UNK
     Route: 065
     Dates: start: 20230501

REACTIONS (5)
  - Oligomenorrhoea [Unknown]
  - Depressed mood [Unknown]
  - Heavy menstrual bleeding [Unknown]
  - Influenza like illness [Unknown]
  - Nasopharyngitis [Unknown]
